FAERS Safety Report 7149284-X (Version None)
Quarter: 2010Q4

REPORT INFORMATION
  Report Type: 
  Country: None (occurrence: None)
  Receive Date: 20101209
  Receipt Date: 20101203
  Transmission Date: 20110411
  Serious: Yes (Hospitalization, Other)
  Sender: FDA-Public Use
  Company Number: US-AMGEN-USASP2010006312

PATIENT

DRUGS (5)
  1. NEULASTA [Suspect]
     Indication: CHEMOTHERAPY
     Dosage: UNK
  2. LAPATINIB [Concomitant]
     Dosage: 750 MG, QD
  3. METOPROLOL [Concomitant]
     Dosage: 25 MG, QD
  4. ASPIRIN [Concomitant]
  5. DEXAMETHASONE [Concomitant]
     Dosage: 4 MG, BID

REACTIONS (3)
  - PALPITATIONS [None]
  - SUPRAVENTRICULAR TACHYCARDIA [None]
  - WHITE BLOOD CELL COUNT INCREASED [None]
